FAERS Safety Report 5207883-6 (Version None)
Quarter: 2007Q1

REPORT INFORMATION
  Report Type: 
  Country: None (occurrence: None)
  Receive Date: 20070112
  Receipt Date: 20070102
  Transmission Date: 20070707
  Serious: Yes (Hospitalization)
  Sender: FDA-Public Use
  Company Number: DE-PFIZER INC-2007002990

PATIENT
  Age: 92 Year
  Sex: Female

DRUGS (4)
  1. ZOLOFT [Suspect]
     Dosage: DAILY DOSE:50MG
     Route: 048
     Dates: start: 20010406, end: 20010427
  2. REMINYL [Suspect]
     Indication: DEMENTIA ALZHEIMER'S TYPE
     Dosage: DAILY DOSE:8MG
     Route: 048
     Dates: start: 20010409, end: 20010420
  3. OXAZEPAM [Concomitant]
     Route: 048
  4. ZYPREXA [Concomitant]
     Route: 048

REACTIONS (3)
  - AGITATION [None]
  - DRUG EFFECT INCREASED [None]
  - SLEEP DISORDER [None]
